FAERS Safety Report 4386572-4 (Version None)
Quarter: 2004Q2

REPORT INFORMATION
  Report Type: 
  Country: None (occurrence: None)
  Receive Date: 20040623
  Receipt Date: 20040615
  Transmission Date: 20050107
  Serious: Yes (Death, Life-Threatening)
  Sender: FDA-Public Use
  Company Number: KR-2004-026635

PATIENT
  Age: 61 Year
  Sex: Male

DRUGS (1)
  1. ULTRAVIST 370 [Suspect]
     Indication: COMPUTERISED TOMOGRAM
     Dosage: 100 ML, INTRAVENOUS
     Route: 042
     Dates: start: 20040604, end: 20040604

REACTIONS (12)
  - BLOOD PRESSURE DECREASED [None]
  - CEREBRAL INFARCTION [None]
  - CONTRAST MEDIA REACTION [None]
  - ERYTHEMA [None]
  - FACE OEDEMA [None]
  - HYPERHIDROSIS [None]
  - HYPOXIC ENCEPHALOPATHY [None]
  - IRRITABILITY [None]
  - OXYGEN SATURATION DECREASED [None]
  - PRURITUS [None]
  - SOMNOLENCE [None]
  - VOMITING [None]
